FAERS Safety Report 5934446-7 (Version None)
Quarter: 2008Q4

REPORT INFORMATION
  Report Type: 
  Country: None (occurrence: None)
  Receive Date: 20081029
  Receipt Date: 20081015
  Transmission Date: 20090506
  Serious: Yes (Hospitalization)
  Sender: FDA-Public Use
  Company Number: CA-ELI_LILLY_AND_COMPANY-CA200809004464

PATIENT
  Age: 18 Year
  Sex: Female

DRUGS (2)
  1. CYMBALTA [Suspect]
     Indication: CHRONIC FATIGUE SYNDROME
     Dosage: 60 MG, UNK
     Route: 048
     Dates: start: 20080826, end: 20080826
  2. TRAZODONE HCL [Concomitant]
     Indication: INSOMNIA
     Dosage: 50 MG, EACH EVENING
     Dates: start: 20070101

REACTIONS (4)
  - ANXIETY [None]
  - HYPERREFLEXIA [None]
  - MUSCLE RIGIDITY [None]
  - MUSCLE TWITCHING [None]
